FAERS Safety Report 25998594 (Version 1)
Quarter: 2025Q4

REPORT INFORMATION
  Report Type: Spontaneous
  Country: EU (occurrence: EU)
  Receive Date: 20251105
  Receipt Date: 20251105
  Transmission Date: 20260117
  Serious: Yes (Disabling)
  Sender: ARGENX BVBA
  Company Number: EU-ARGENX-2025-ARGX-SI015192

PATIENT

DRUGS (1)
  1. VYVGART [Suspect]
     Active Substance: EFGARTIGIMOD ALFA-FCAB
     Indication: Myasthenia gravis
     Dosage: 10 MG/ML PER KG
     Route: 065

REACTIONS (1)
  - Myasthenia gravis [Unknown]

NARRATIVE: CASE EVENT DATE: 20251001
